FAERS Safety Report 13726233 (Version 2)
Quarter: 2017Q3

REPORT INFORMATION
  Report Type: Spontaneous
  Country: FR (occurrence: FR)
  Receive Date: 20170706
  Receipt Date: 20170801
  Transmission Date: 20171127
  Serious: Yes (Other)
  Sender: FDA-Public Use
  Company Number: FR-ELI_LILLY_AND_COMPANY-FR201706010940

PATIENT
  Age: 48 Year
  Sex: Male

DRUGS (3)
  1. ABASAGLAR [Concomitant]
     Active Substance: INSULIN GLARGINE
     Indication: PANCREATOGENOUS DIABETES
     Dosage: 8 IU, EACH EVENING
     Route: 058
     Dates: start: 20170427
  2. GEMZAR [Suspect]
     Active Substance: GEMCITABINE HYDROCHLORIDE
     Indication: ADENOCARCINOMA PANCREAS
     Dosage: 1900 MG, 3 WEEKS/4
     Route: 042
     Dates: start: 20170510, end: 20170517
  3. ORACILLINE                         /00001801/ [Concomitant]
     Active Substance: PENICILLIN V
     Indication: PROPHYLAXIS
     Dosage: 3 DF, DAILY
     Route: 048
     Dates: start: 20170316

REACTIONS (3)
  - Gait disturbance [Unknown]
  - Tendonitis [Recovered/Resolved]
  - Nausea [Unknown]

NARRATIVE: CASE EVENT DATE: 20170510
